FAERS Safety Report 12549959 (Version 2)
Quarter: 2016Q3

REPORT INFORMATION
  Report Type: Spontaneous
  Country: CZ (occurrence: CZ)
  Receive Date: 20160712
  Receipt Date: 20160927
  Transmission Date: 20161109
  Serious: Yes (Other)
  Sender: FDA-Public Use
  Company Number: CZ-TEVA-673635ISR

PATIENT
  Age: 63 Year
  Sex: Male

DRUGS (7)
  1. NOCLAUD [Concomitant]
     Indication: PERIPHERAL ARTERIAL OCCLUSIVE DISEASE
     Route: 048
  2. TELMISARTAN MYLAN [Concomitant]
     Active Substance: TELMISARTAN
     Indication: HYPERTENSION
     Route: 048
  3. VINCRISTINE [Suspect]
     Active Substance: VINCRISTINE
     Indication: MALIGNANT MELANOMA
     Dosage: TWO CYCLES
     Dates: start: 2014, end: 201412
  4. CISPLATIN. [Suspect]
     Active Substance: CISPLATIN
     Indication: MALIGNANT MELANOMA
     Dosage: TWO CYCLES
     Dates: start: 2014, end: 201412
  5. GODASAL [Concomitant]
     Active Substance: ASPIRIN\GLYCINE
     Route: 048
  6. ROSUCARD [Concomitant]
     Active Substance: ROSUVASTATIN CALCIUM
     Indication: HYPERLIPIDAEMIA
     Route: 048
  7. INTERFERON ALFA NOS [Suspect]
     Active Substance: INTERFERON ALFA-2A OR INTERFERON ALFA-2B
     Indication: MALIGNANT MELANOMA
     Dosage: TWO CYCLES
     Dates: start: 2014, end: 201412

REACTIONS (3)
  - Hepatic lesion [Unknown]
  - Melanoma recurrent [Unknown]
  - Metastatic malignant melanoma [Unknown]

NARRATIVE: CASE EVENT DATE: 2014
